FAERS Safety Report 17124592 (Version 6)
Quarter: 2021Q3

REPORT INFORMATION
  Report Type: Spontaneous
  Country: US (occurrence: US)
  Receive Date: 20191206
  Receipt Date: 20210915
  Transmission Date: 20211014
  Serious: No
  Sender: FDA-Public Use
  Company Number: US-PFIZER INC-2018512494

PATIENT
  Age: 59 Year
  Sex: Male

DRUGS (3)
  1. SOMAVERT [Suspect]
     Active Substance: PEGVISOMANT
     Dosage: 30 MG, 2X/WEEK
     Dates: start: 20191226
  2. SOMAVERT [Suspect]
     Active Substance: PEGVISOMANT
     Dosage: 30 MG 4X A WEEK
     Route: 058
  3. SOMAVERT [Suspect]
     Active Substance: PEGVISOMANT
     Indication: ARNOLD-CHIARI MALFORMATION
     Dosage: 40 MG, UNK
     Dates: start: 2017

REACTIONS (7)
  - Product reconstitution quality issue [Unknown]
  - Arthritis [Not Recovered/Not Resolved]
  - Drug ineffective for unapproved indication [Recovered/Resolved]
  - Insulin-like growth factor increased [Unknown]
  - Off label use [Unknown]
  - Poor quality device used [Unknown]
  - Hepatic enzyme increased [Unknown]

NARRATIVE: CASE EVENT DATE: 2017
